FAERS Safety Report 21090855 (Version 1)
Quarter: 2022Q3

REPORT INFORMATION
  Report Type: Other
  Country: None (occurrence: CN)
  Receive Date: 20220716
  Receipt Date: 20220716
  Transmission Date: 20221027
  Serious: No
  Sender: FDA-Public Use
  Company Number: CN-Tenshi Kaizen Private Limited-2130940

PATIENT
  Age: 37 Year
  Sex: Female

DRUGS (3)
  1. LORATADINE [Suspect]
     Active Substance: LORATADINE
     Indication: Pruritus
     Route: 065
  2. NADROPARIN CALCIUM [Suspect]
     Active Substance: NADROPARIN CALCIUM
     Route: 058
  3. DYDROGESTERONE [Suspect]
     Active Substance: DYDROGESTERONE
     Route: 065

REACTIONS (1)
  - Maternal exposure during pregnancy [Unknown]
